FAERS Safety Report 10339650 (Version 1)
Quarter: 2014Q3

REPORT INFORMATION
  Report Type: Spontaneous
  Country: US (occurrence: None)
  Receive Date: 20140723
  Receipt Date: 20140723
  Transmission Date: 20150326
  Serious: No
  Sender: FDA-Public Use
  Company Number: None

PATIENT
  Age: 16 Year
  Sex: Female
  Weight: 47.63 kg

DRUGS (1)
  1. CELEXA [Suspect]
     Active Substance: CITALOPRAM HYDROBROMIDE
     Indication: CYSTITIS INTERSTITIAL
     Dosage: 20 MG ONCE DAILY, ONCE DAILY, TAKEN BY MOUTH
     Route: 048
     Dates: start: 20140501, end: 20140702

REACTIONS (3)
  - Chest pain [None]
  - Heart rate irregular [None]
  - Heart rate increased [None]

NARRATIVE: CASE EVENT DATE: 20140721
